FAERS Safety Report 10330628 (Version 1)
Quarter: 2014Q3

REPORT INFORMATION
  Report Type: Spontaneous
  Country: BE (occurrence: None)
  Receive Date: 20140717
  Receipt Date: 20140717
  Transmission Date: 20150326
  Serious: Yes (Hospitalization, Other)
  Sender: FDA-Public Use
  Company Number: ADR-2014-01227

PATIENT
  Age: 15 Year
  Sex: Female

DRUGS (2)
  1. RANITIDINE [Suspect]
     Active Substance: RANITIDINE\RANITIDINE HYDROCHLORIDE
     Indication: HICCUPS
  2. BACLOFEN. [Suspect]
     Active Substance: BACLOFEN
     Indication: HICCUPS

REACTIONS (3)
  - No therapeutic response [None]
  - Nuclear magnetic resonance imaging brain abnormal [None]
  - Oesophagitis [None]

NARRATIVE: CASE EVENT DATE: 20130921
